FAERS Safety Report 4892538-8 (Version None)
Quarter: 2006Q1

REPORT INFORMATION
  Report Type: 
  Country: None (occurrence: None)
  Receive Date: 20060126
  Receipt Date: 20060116
  Transmission Date: 20060701
  Serious: Yes (Hospitalization)
  Sender: FDA-Public Use
  Company Number: PHFR2006GB00569

PATIENT
  Age: 52 Year
  Sex: Male

DRUGS (3)
  1. CARBAMAZEPINE [Suspect]
     Route: 065
  2. RISPERDAL [Suspect]
     Indication: LEARNING DISABILITY
     Dosage: 4 MG, BID
     Route: 048
  3. PAROXETINE HCL [Concomitant]
     Route: 065

REACTIONS (2)
  - ABDOMINAL OPERATION [None]
  - INTESTINAL OBSTRUCTION [None]
